FAERS Safety Report 21704095 (Version 1)
Quarter: 2022Q4

REPORT INFORMATION
  Report Type: Spontaneous
  Country: BR (occurrence: BR)
  Receive Date: 20221209
  Receipt Date: 20221209
  Transmission Date: 20230112
  Serious: Yes (Other)
  Sender: FDA-Public Use
  Company Number: BR-CELLTRION INC.-2022BR020555

PATIENT

DRUGS (4)
  1. HERZUMA [Suspect]
     Active Substance: TRASTUZUMAB-PKRB
     Indication: Invasive breast carcinoma
     Dosage: 552MG/CYCLE
     Route: 042
     Dates: start: 20220428
  2. PERTUZUMAB [Concomitant]
     Active Substance: PERTUZUMAB
     Indication: Neoplasm malignant
     Dosage: 840 MG/CYCLE ROA: INJETABLE
     Dates: start: 20220428, end: 20220428
  3. DOCETAXEL [Concomitant]
     Active Substance: DOCETAXEL
     Indication: Neoplasm malignant
     Dosage: 131,2 MG/CYCLE ROA: INJETABLE
     Dates: start: 20220428, end: 20220428
  4. ONDANSETRON HYDROCHLORIDE [Concomitant]
     Active Substance: ONDANSETRON HYDROCHLORIDE
     Indication: Neoplasm malignant
     Dosage: 8 MG/CYCLE ROA: INJETABLE
     Dates: start: 20220428, end: 20220428

REACTIONS (4)
  - Tremor [Unknown]
  - Chills [Unknown]
  - Back pain [Unknown]
  - Off label use [Unknown]

NARRATIVE: CASE EVENT DATE: 20220428
